FAERS Safety Report 22066174 (Version 2)
Quarter: 2023Q4

REPORT INFORMATION
  Report Type: Report from Study
  Country: BG (occurrence: BG)
  Receive Date: 20230306
  Receipt Date: 20231006
  Transmission Date: 20240110
  Serious: Yes (Other)
  Sender: FDA-Public Use
  Company Number: BG-TAKEDA-2022TUS000487

PATIENT
  Sex: Female

DRUGS (1)
  1. VEDOLIZUMAB [Suspect]
     Active Substance: VEDOLIZUMAB
     Indication: Colitis ulcerative
     Dosage: 108 MILLIGRAM, Q2WEEKS
     Route: 058
     Dates: start: 20190222

REACTIONS (5)
  - Cataract [Unknown]
  - Bone pain [Unknown]
  - Asthenopia [Unknown]
  - Musculoskeletal stiffness [Unknown]
  - Pain in extremity [Unknown]
